FAERS Safety Report 10015277 (Version 1)
Quarter: 2014Q1

REPORT INFORMATION
  Report Type: Spontaneous
  Country: US (occurrence: US)
  Receive Date: 20140317
  Receipt Date: 20140317
  Transmission Date: 20141002
  Serious: No
  Sender: FDA-Public Use
  Company Number: US-PFIZER INC-2014072465

PATIENT
  Age: 59 Year
  Sex: Female
  Weight: 49.89 kg

DRUGS (2)
  1. IBUPROFEN [Suspect]
     Indication: ARTHRALGIA
     Dosage: 200 MG, FOUR TIMES A DAY
     Dates: end: 201309
  2. LYRICA [Concomitant]
     Indication: FIBROMYALGIA
     Dosage: 200 MG, DAILY

REACTIONS (1)
  - Local swelling [Unknown]
